FAERS Safety Report 11553459 (Version 1)
Quarter: 2015Q3

REPORT INFORMATION
  Report Type: Spontaneous
  Country: US (occurrence: US)
  Receive Date: 20150925
  Receipt Date: 20150925
  Transmission Date: 20151125
  Serious: Yes (Death, Other)
  Sender: FDA-Public Use
  Company Number: US-TEVA-595642USA

PATIENT

DRUGS (3)
  1. DIVALPROEX [Suspect]
     Active Substance: DIVALPROEX SODIUM
     Dosage: 1000 MILLIGRAM DAILY;
     Route: 065
  2. LEVETIRACETAM. [Suspect]
     Active Substance: LEVETIRACETAM
     Dosage: 100 MG/ML SOLUTION AT 10  ML PER G-TUBE TWICE DAILY
     Route: 065
  3. VALPROIC ACID. [Suspect]
     Active Substance: VALPROIC ACID
     Dosage: 250 MG/5 ML SOLUTION AT 20 ML PER G-TUBE EVERY 12 HOURS
     Route: 065

REACTIONS (2)
  - Death [Fatal]
  - Skin disorder [Unknown]
